FAERS Safety Report 8924472 (Version 2)
Quarter: 2012Q4

REPORT INFORMATION
  Report Type: 
  Country: US (occurrence: US)
  Receive Date: 20121126
  Receipt Date: 20121128
  Transmission Date: 20130627
  Serious: Yes (Death)
  Sender: FDA-Public Use
  Company Number: PHHY2012US107969

PATIENT
  Age: 69 Year
  Sex: Female

DRUGS (7)
  1. OXYCODONE HYDROCHLORIDE [Suspect]
  2. METHADONE [Suspect]
  3. DIPHENHYDRAMINE [Suspect]
  4. PHENYTOIN [Suspect]
  5. ETHANOL [Suspect]
  6. BENZOYLECGONINE [Suspect]
  7. COCAETHYLENE [Suspect]

REACTIONS (1)
  - Toxicity to various agents [Fatal]
